FAERS Safety Report 24832702 (Version 1)
Quarter: 2025Q1

REPORT INFORMATION
  Report Type: Spontaneous
  Country: GB (occurrence: GB)
  Receive Date: 20250110
  Receipt Date: 20250110
  Transmission Date: 20250409
  Serious: Yes (Hospitalization, Other)
  Sender: ELI LILLY AND COMPANY
  Company Number: GB-ELI_LILLY_AND_COMPANY-GB202412007536

PATIENT
  Age: 26 Year
  Sex: Male

DRUGS (5)
  1. MOUNJARO [Suspect]
     Active Substance: TIRZEPATIDE
     Indication: Weight control
     Dosage: 2.5 MG, WEEKLY (1/W)
     Route: 058
     Dates: start: 20240305
  2. MOUNJARO [Suspect]
     Active Substance: TIRZEPATIDE
     Dosage: 5 MG, WEEKLY (1/W)
     Route: 058
  3. MOUNJARO [Suspect]
     Active Substance: TIRZEPATIDE
     Dosage: 10 MG, WEEKLY (1/W)
     Route: 058
  4. MOUNJARO [Suspect]
     Active Substance: TIRZEPATIDE
     Dosage: 12.5 MG, WEEKLY (1/W)
     Route: 058
  5. MOUNJARO [Suspect]
     Active Substance: TIRZEPATIDE
     Dosage: UNK UNK, WEEKLY (1/W)
     Route: 058

REACTIONS (15)
  - Panic attack [Unknown]
  - Hypovitaminosis [Unknown]
  - Tachycardia [Unknown]
  - Decreased appetite [Unknown]
  - Hypophagia [Unknown]
  - Illness [Unknown]
  - Emotional poverty [Unknown]
  - Fear [Unknown]
  - Pallor [Unknown]
  - Disturbance in attention [Unknown]
  - Crying [Unknown]
  - Hyperhidrosis [Unknown]
  - Tremor [Unknown]
  - Palpitations [Unknown]
  - Asthenia [Unknown]

NARRATIVE: CASE EVENT DATE: 20240801
